FAERS Safety Report 13682285 (Version 1)
Quarter: 2017Q2

REPORT INFORMATION
  Report Type: Spontaneous
  Country: US (occurrence: US)
  Receive Date: 20170622
  Receipt Date: 20170622
  Transmission Date: 20170830
  Serious: Yes (Hospitalization)
  Sender: FDA-Public Use
  Company Number: None

PATIENT
  Age: 70 Year
  Sex: Female

DRUGS (1)
  1. PULMOZYME [Suspect]
     Active Substance: DORNASE ALFA
     Indication: CYSTIC FIBROSIS LUNG
     Dosage: 2.5MG ONCE A DAY VIA NEBULIZER
     Dates: start: 20161108

REACTIONS (2)
  - Endotracheal intubation complication [None]
  - Shoulder operation [None]

NARRATIVE: CASE EVENT DATE: 20170601
